FAERS Safety Report 7015044-3 (Version None)
Quarter: 2010Q3

REPORT INFORMATION
  Report Type: 
  Country: None (occurrence: None)
  Receive Date: 20100927
  Receipt Date: 20100916
  Transmission Date: 20110219
  Serious: Yes (Other)
  Sender: FDA-Public Use
  Company Number: PHHY2010BR62456

PATIENT
  Age: 56 Year
  Sex: Female

DRUGS (1)
  1. VOLTAREN [Suspect]
     Dosage: 1 DROP IN EACH EYE

REACTIONS (4)
  - CATARACT [None]
  - CONJUNCTIVITIS ALLERGIC [None]
  - EYE PRURITUS [None]
  - VISION BLURRED [None]
